FAERS Safety Report 8060370-2 (Version None)
Quarter: 2012Q1

REPORT INFORMATION
  Report Type: 
  Country: None (occurrence: None)
  Receive Date: 20120120
  Receipt Date: 20120112
  Transmission Date: 20120608
  Serious: Yes (Other)
  Sender: FDA-Public Use
  Company Number: US-US-EMD SERONO, INC.-234311K09USA

PATIENT
  Sex: Female

DRUGS (5)
  1. NOVANTRONE [Suspect]
     Indication: MULTIPLE SCLEROSIS
     Dates: start: 20060101, end: 20080101
  2. ACETAMINOPHEN [Concomitant]
     Indication: PREMEDICATION
  3. REBIF [Suspect]
     Indication: MULTIPLE SCLEROSIS
     Route: 058
     Dates: start: 20070129
  4. UNSPECIFIED STEROIDS [Concomitant]
     Indication: MULTIPLE SCLEROSIS RELAPSE
  5. VITAMIN B-12 [Concomitant]
     Indication: ANAEMIA

REACTIONS (5)
  - WHITE BLOOD CELL COUNT ABNORMAL [None]
  - RED BLOOD CELL COUNT ABNORMAL [None]
  - RENAL IMPAIRMENT [None]
  - INJECTION SITE PAIN [None]
  - HAEMATOCRIT ABNORMAL [None]
